FAERS Safety Report 5457593-5 (Version None)
Quarter: 2007Q3

REPORT INFORMATION
  Report Type: 
  Country: None (occurrence: None)
  Receive Date: 20070918
  Receipt Date: 20070911
  Transmission Date: 20080115
  Serious: Yes (Hospitalization)
  Sender: FDA-Public Use
  Company Number: US-BOEHRINGER INGELHEIM PHARMACEUTICALS, INC.-2007-BP-20892BP

PATIENT
  Sex: Male
  Weight: 88 kg

DRUGS (12)
  1. TIPRANAVIR / RITONAVIR CAPSULES [Suspect]
     Indication: HIV INFECTION
     Route: 048
     Dates: start: 20070827, end: 20070905
  2. ABACAVIR [Concomitant]
     Indication: HIV INFECTION
     Route: 048
     Dates: start: 19991116
  3. VIRAMUNE [Concomitant]
     Indication: HIV INFECTION
     Route: 048
     Dates: start: 19971125
  4. OXYCODONE HCL [Concomitant]
     Route: 048
  5. COZAAR [Concomitant]
     Route: 048
  6. ZETIA [Concomitant]
     Route: 048
  7. TRAZODONE HCL [Concomitant]
     Route: 048
  8. LYRICA [Concomitant]
     Route: 048
  9. AMBIEN [Concomitant]
     Route: 048
  10. CRESTOR [Concomitant]
     Route: 048
  11. CYMBALTA [Concomitant]
     Route: 048
  12. ACYCLOVIR [Concomitant]
     Route: 048

REACTIONS (4)
  - CONDITION AGGRAVATED [None]
  - NEUROPATHY PERIPHERAL [None]
  - OEDEMA PERIPHERAL [None]
  - PULMONARY EMBOLISM [None]
